FAERS Safety Report 24665899 (Version 1)
Quarter: 2024Q4

REPORT INFORMATION
  Report Type: Spontaneous
  Country: FR (occurrence: FR)
  Receive Date: 20241126
  Receipt Date: 20241126
  Transmission Date: 20250115
  Serious: Yes (Hospitalization)
  Sender: FRESENIUS KABI
  Company Number: None

PATIENT
  Age: 69 Year
  Sex: Male
  Weight: 69 kg

DRUGS (4)
  1. CARBOPLATIN [Suspect]
     Active Substance: CARBOPLATIN
     Indication: Lung adenocarcinoma stage IV
     Dosage: 5 AUC
     Route: 042
     Dates: start: 20231219, end: 20240305
  2. PEMETREXED DISODIUM [Suspect]
     Active Substance: PEMETREXED DISODIUM
     Indication: Lung adenocarcinoma stage IV
     Dosage: 1 TREATMENT EVERY 21 DAYS?FOA: INJECTION
     Route: 042
     Dates: start: 20231219, end: 20240206
  3. PEMETREXED DISODIUM [Suspect]
     Active Substance: PEMETREXED DISODIUM
     Dosage: 1 TREATMENT EVERY 21 DAYS?DOSE REDUCTION (80% THEORETICAL DOSE)?FOA: INJECTION
     Route: 042
     Dates: start: 20240305, end: 20240305
  4. EMEND [Suspect]
     Active Substance: APREPITANT
     Indication: Chemotherapy side effect prophylaxis
     Dosage: 125 MG ON D1?80 MG ON D2 AND D3?21-DAY CYCLES
     Route: 048
     Dates: start: 20231219, end: 20240307

REACTIONS (2)
  - Pancytopenia [Recovered/Resolved]
  - Stevens-Johnson syndrome [Recovered/Resolved]

NARRATIVE: CASE EVENT DATE: 20240221
